FAERS Safety Report 12503137 (Version 1)
Quarter: 2016Q2

REPORT INFORMATION
  Report Type: Spontaneous
  Country: US (occurrence: None)
  Receive Date: 20160627
  Receipt Date: 20160627
  Transmission Date: 20160815
  Serious: No
  Sender: FDA-Public Use
  Company Number: None

PATIENT
  Age: 93 Year
  Sex: Female
  Weight: 56.7 kg

DRUGS (16)
  1. ELLURA CRANBERRY PILL [Concomitant]
  2. XALATAN [Concomitant]
     Active Substance: LATANOPROST
  3. UBIQUINOL [Concomitant]
     Active Substance: UBIQUINOL
  4. WARFARIN [Concomitant]
     Active Substance: WARFARIN
  5. PREVIDENT 5000 PLUS SPEARMINT [Suspect]
     Active Substance: SODIUM FLUORIDE
     Indication: PROPHYLAXIS
     Dosage: 1 TUBE TWICE A DAY APPLIED BY BRUSH TO TEETH LEFT FOR 5MIN
     Dates: start: 20150531, end: 20150731
  6. PREVIDENT 5000 PLUS SPEARMINT [Suspect]
     Active Substance: SODIUM FLUORIDE
     Indication: DENTAL CARIES
     Dosage: 1 TUBE TWICE A DAY APPLIED BY BRUSH TO TEETH LEFT FOR 5MIN
     Dates: start: 20150531, end: 20150731
  7. GASTRIC FEEDING TUBE [Concomitant]
  8. ESTERASE [Concomitant]
  9. CULTURELLE [Concomitant]
     Active Substance: LACTOBACILLUS RHAMNOSUS
  10. FLUORIDEX DAILY DEFENSE CLEAN MINT 5000PPM [Suspect]
     Active Substance: SODIUM FLUORIDE
     Indication: PROPHYLAXIS
     Dosage: 1 TUBE TWICE A DAY APPLIED TO TEETH W/BRUSH, LEFT FOR 5MIN
     Dates: start: 20160624, end: 20160625
  11. SYNTHROID [Concomitant]
     Active Substance: LEVOTHYROXINE SODIUM
  12. DILTIAZEM [Concomitant]
     Active Substance: DILTIAZEM
  13. MEGAFOODS MULTI FOR 55+ VITAMIN + MINERAL SUPPLEMENT [Concomitant]
  14. FLUORIDEX DAILY DEFENSE CLEAN MINT 5000PPM [Suspect]
     Active Substance: SODIUM FLUORIDE
     Indication: DENTAL CARIES
     Dosage: 1 TUBE TWICE A DAY APPLIED TO TEETH W/BRUSH, LEFT FOR 5MIN
     Dates: start: 20160624, end: 20160625
  15. TIMOLOL EYE DROPS [Concomitant]
  16. DIGOXIN. [Concomitant]
     Active Substance: DIGOXIN

REACTIONS (3)
  - Lip exfoliation [None]
  - Lip dry [None]
  - Cheilitis [None]

NARRATIVE: CASE EVENT DATE: 20160626
